FAERS Safety Report 7690470-8 (Version None)
Quarter: 2011Q3

REPORT INFORMATION
  Report Type: 
  Country: None (occurrence: None)
  Receive Date: 20110818
  Receipt Date: 20110815
  Transmission Date: 20111222
  Serious: Yes (Death)
  Sender: FDA-Public Use
  Company Number: US-PFIZER INC-2011188028

PATIENT
  Sex: Male

DRUGS (16)
  1. SUTENT [Suspect]
     Dosage: 37.5 MG (25 MG AND 12.5 MG CAPSULES), 1X/DAY
     Route: 048
     Dates: start: 20090923
  2. TAMSULOSIN HYDROCHLORIDE [Concomitant]
     Dosage: 0.4 MG
  3. DILANTIN [Concomitant]
     Dosage: 30 MG
  4. LANTHANUM CARBONATE [Concomitant]
     Dosage: 250 MG
  5. ASPIRIN [Concomitant]
     Dosage: 81 MG
  6. VICODIN [Concomitant]
     Dosage: 5-500 MG
  7. FENTANYL [Concomitant]
     Dosage: 12 MCG/HR
  8. CLONIDINE [Concomitant]
     Dosage: 0.1 MG
  9. ZESTRIL [Concomitant]
     Dosage: 2.5 MG
  10. ALLOPURINOL [Concomitant]
     Dosage: 100 MG
  11. SENSIPAR [Concomitant]
     Dosage: 30 MG
  12. LEVOTHYROXINE [Concomitant]
     Dosage: 100 MCG
  13. DALIVIT [Concomitant]
     Dosage: UNK
  14. LUNESTA [Concomitant]
     Dosage: 1 MG
  15. NEXIUM [Concomitant]
     Dosage: 20 MG
  16. CELEXA [Concomitant]
     Dosage: 10 MG

REACTIONS (1)
  - DEATH [None]
